FAERS Safety Report 4502890-0 (Version None)
Quarter: 2004Q4

REPORT INFORMATION
  Report Type: 
  Country: None (occurrence: None)
  Receive Date: 20041116
  Receipt Date: 20041116
  Transmission Date: 20050328
  Serious: Yes (Other)
  Sender: FDA-Public Use
  Company Number: None

PATIENT
  Age: 63 Year
  Sex: Female
  Weight: 58.9676 kg

DRUGS (1)
  1. CORGARD [Suspect]
     Dosage: 1/2 DAILY AT NIGHT
     Dates: start: 20041111, end: 20041113

REACTIONS (3)
  - ASTHENIA [None]
  - ORAL MUCOSAL BLISTERING [None]
  - SWELLING FACE [None]
